FAERS Safety Report 9182199 (Version 1)
Quarter: 2013Q1

REPORT INFORMATION
  Report Type: Spontaneous
  Country: US (occurrence: None)
  Receive Date: 20130321
  Receipt Date: 20130321
  Transmission Date: 20140127
  Serious: Yes (Life-Threatening, Hospitalization)
  Sender: FDA-Public Use
  Company Number: None

PATIENT
  Age: 69 Year
  Sex: Female

DRUGS (6)
  1. ENALAPRIL [Suspect]
     Dosage: ORAL?YEARS
  2. ENALAPRIL [Suspect]
     Dosage: ORAL?YEARS
  3. FUROSEMIDE [Concomitant]
  4. METFORMIN [Concomitant]
  5. ESOMEPRAZOLE [Concomitant]
  6. SIMVASTATIN [Concomitant]

REACTIONS (4)
  - Swelling face [None]
  - Lip swelling [None]
  - Swollen tongue [None]
  - Speech disorder [None]
